FAERS Safety Report 4899786-1 (Version None)
Quarter: 2006Q1

REPORT INFORMATION
  Report Type: 
  Country: None (occurrence: None)
  Receive Date: 20060118
  Receipt Date: 20050510
  Transmission Date: 20060701
  Serious: No
  Sender: FDA-Public Use
  Company Number: 2005000902

PATIENT
  Age: 82 Year
  Sex: Female
  Weight: 42.1845 kg

DRUGS (1)
  1. TARCEVA [Suspect]
     Indication: LUNG NEOPLASM MALIGNANT
     Dosage: 150MG (QD), ORAL
     Route: 048
     Dates: start: 20050101

REACTIONS (7)
  - AGEUSIA [None]
  - ALOPECIA [None]
  - EYE DISORDER [None]
  - GLOSSODYNIA [None]
  - RASH [None]
  - SWOLLEN TONGUE [None]
  - TONGUE OEDEMA [None]
